FAERS Safety Report 11094826 (Version 2)
Quarter: 2015Q2

REPORT INFORMATION
  Report Type: Spontaneous
  Country: US (occurrence: US)
  Receive Date: 20150506
  Receipt Date: 20150618
  Transmission Date: 20150821
  Serious: Yes (Other)
  Sender: FDA-Public Use
  Company Number: US-JNJFOC-20150502967

PATIENT
  Age: 81 Year
  Sex: Female

DRUGS (4)
  1. LOSARTAN POTASSIUM. [Concomitant]
     Active Substance: LOSARTAN POTASSIUM
  2. IMBRUVICA [Suspect]
     Active Substance: IBRUTINIB
     Indication: MANTLE CELL LYMPHOMA
     Route: 048
     Dates: start: 20150608
  3. ASPIRIN. [Concomitant]
     Active Substance: ASPIRIN
  4. IMBRUVICA [Suspect]
     Active Substance: IBRUTINIB
     Indication: MANTLE CELL LYMPHOMA
     Route: 048
     Dates: start: 20150115, end: 20150402

REACTIONS (2)
  - Haematotympanum [Unknown]
  - Hearing impaired [Recovering/Resolving]

NARRATIVE: CASE EVENT DATE: 20150401
